FAERS Safety Report 5240485-4 (Version None)
Quarter: 2007Q1

REPORT INFORMATION
  Report Type: 
  Country: None (occurrence: None)
  Receive Date: 20070219
  Receipt Date: 20070215
  Transmission Date: 20070707
  Serious: Yes (Other)
  Sender: FDA-Public Use
  Company Number: US-GLAXOSMITHKLINE-A0639713A

PATIENT
  Sex: Female

DRUGS (6)
  1. PAROXETINE HCL [Suspect]
     Indication: PANIC DISORDER
     Dosage: 40MG PER DAY
     Route: 048
     Dates: start: 20030101, end: 20070124
  2. WELLBUTRIN [Suspect]
     Indication: DEPRESSION
     Dosage: 300MG PER DAY
     Route: 048
     Dates: start: 20070124, end: 20070207
  3. WELLBUTRIN [Suspect]
     Dosage: 150MG PER DAY
     Route: 048
     Dates: start: 20070208, end: 20070213
  4. HYDROCHLOROTHIAZIDE [Concomitant]
  5. DIOVAN [Concomitant]
  6. ATIVAN [Concomitant]

REACTIONS (9)
  - ABDOMINAL PAIN [None]
  - ANXIETY [None]
  - CONSTIPATION [None]
  - CRYING [None]
  - DEPRESSION [None]
  - DRY MOUTH [None]
  - INSOMNIA [None]
  - SUICIDAL IDEATION [None]
  - WEIGHT INCREASED [None]
